FAERS Safety Report 14982336 (Version 1)
Quarter: 2018Q2

REPORT INFORMATION
  Report Type: Spontaneous
  Country: US (occurrence: US)
  Receive Date: 20180607
  Receipt Date: 20180607
  Transmission Date: 20180711
  Serious: No
  Sender: FDA-Public Use
  Company Number: US-BIOGEN-2018BI00590816

PATIENT
  Sex: Male

DRUGS (8)
  1. AVONEX [Suspect]
     Active Substance: INTERFERON BETA-1A
     Dosage: FULL DOSE WEEK 4
     Route: 030
     Dates: start: 201804, end: 201805
  2. AVONEX [Suspect]
     Active Substance: INTERFERON BETA-1A
     Indication: MULTIPLE SCLEROSIS
     Dosage: 1/4 DOSE WEEK 1
     Route: 030
     Dates: start: 201804, end: 201805
  3. AVONEX [Suspect]
     Active Substance: INTERFERON BETA-1A
     Dosage: 3/4 DOSE WEEK 3
     Route: 030
     Dates: start: 201804, end: 201805
  4. AVONEX [Suspect]
     Active Substance: INTERFERON BETA-1A
     Dosage: FULL DOSE WEEK 4
     Route: 030
     Dates: start: 201804, end: 201805
  5. AVONEX [Suspect]
     Active Substance: INTERFERON BETA-1A
     Dosage: 1/2 DOSE WEEK 2
     Route: 030
     Dates: start: 201804, end: 201805
  6. AVONEX [Suspect]
     Active Substance: INTERFERON BETA-1A
     Dosage: 1/2 DOSE WEEK 2
     Route: 030
     Dates: start: 201804, end: 201805
  7. AVONEX [Suspect]
     Active Substance: INTERFERON BETA-1A
     Dosage: 3/4 DOSE WEEK 3
     Route: 030
     Dates: start: 201804, end: 201805
  8. AVONEX [Suspect]
     Active Substance: INTERFERON BETA-1A
     Dosage: 1/4 DOSE WEEK 1
     Route: 030
     Dates: start: 201804, end: 201805

REACTIONS (2)
  - Balance disorder [Unknown]
  - Multiple sclerosis [Unknown]
